FAERS Safety Report 20945270 (Version 8)
Quarter: 2025Q4

REPORT INFORMATION
  Report Type: Spontaneous
  Country: US (occurrence: US)
  Receive Date: 20220610
  Receipt Date: 20251118
  Transmission Date: 20260118
  Serious: Yes (Other)
  Sender: PFIZER
  Company Number: US-PFIZER INC-202200819594

PATIENT
  Age: 64 Year
  Sex: Male

DRUGS (1)
  1. XELJANZ XR [Suspect]
     Active Substance: TOFACITINIB CITRATE
     Dosage: 11 MG, DAILY

REACTIONS (8)
  - Shoulder operation [Unknown]
  - Musculoskeletal disorder [Unknown]
  - Pain in extremity [Unknown]
  - Paraesthesia [Unknown]
  - Arthritis [Unknown]
  - COVID-19 [Unknown]
  - Influenza [Unknown]
  - Intentional product misuse [Unknown]
